FAERS Safety Report 13562632 (Version 1)
Quarter: 2017Q2

REPORT INFORMATION
  Report Type: Spontaneous
  Country: US (occurrence: US)
  Receive Date: 20170519
  Receipt Date: 20170519
  Transmission Date: 20170830
  Serious: Yes (Other)
  Sender: FDA-Public Use
  Company Number: US-BRISTOL-MYERS SQUIBB COMPANY-BMS-2017-042507

PATIENT
  Sex: Female

DRUGS (1)
  1. OPDIVO [Suspect]
     Active Substance: NIVOLUMAB
     Indication: CERVIX CARCINOMA
     Route: 065

REACTIONS (7)
  - Weight decreased [Unknown]
  - Product use in unapproved indication [Unknown]
  - Muscle spasms [Unknown]
  - Anger [Unknown]
  - Urethral stent insertion [Unknown]
  - Colitis [Unknown]
  - Ureteric compression [Unknown]
